FAERS Safety Report 7336989-0 (Version None)
Quarter: 2011Q1

REPORT INFORMATION
  Report Type: 
  Country: None (occurrence: None)
  Receive Date: 20110224
  Receipt Date: 20110209
  Transmission Date: 20110831
  Serious: Yes (Life-Threatening, Hospitalization, Disabling)
  Sender: FDA-Public Use
  Company Number: 027238

PATIENT
  Sex: Female
  Weight: 64.4108 kg

DRUGS (8)
  1. IMMUNE GLOBULIN NOS [Suspect]
     Indication: AMYOTROPHIC LATERAL SCLEROSIS
  2. CIMZIA [Suspect]
     Indication: CROHN'S DISEASE
     Dosage: (SUBCUTANEOUS)
     Route: 058
     Dates: start: 20100601
  3. VISTARIL /00058402/ [Concomitant]
  4. PHENERGAN HCL [Concomitant]
  5. SINGULAIR [Concomitant]
  6. PREDNISONE [Concomitant]
  7. ATROPINE W/DIPHENOXYLATE /00034001/ [Concomitant]
  8. MERCAPTOPURINE [Concomitant]

REACTIONS (4)
  - AMYOTROPHIC LATERAL SCLEROSIS [None]
  - MENINGITIS ASEPTIC [None]
  - FALL [None]
  - FACE INJURY [None]
